FAERS Safety Report 8578348 (Version 4)
Quarter: 2013Q2

REPORT INFORMATION
  Report Type: Report from Study
  Country: DE (occurrence: DE)
  Receive Date: 20120524
  Receipt Date: 20130606
  Transmission Date: 20140414
  Serious: Yes (Other)
  Sender: FDA-Public Use
  Company Number: DE-CELGENEUS-062-C5013-12051302

PATIENT
  Age: 73 Year
  Sex: Male
  Weight: 81 kg

DRUGS (14)
  1. CC-5013 [Suspect]
     Indication: PLASMA CELL MYELOMA
     Dosage: 25
     Route: 048
     Dates: start: 20101110
  2. CC-5013 [Suspect]
     Route: 048
     Dates: end: 20120320
  3. DEXAMETHASONE [Suspect]
     Indication: PLASMA CELL MYELOMA
     Dosage: 40 MILLIGRAM
     Route: 065
     Dates: start: 20101110
  4. DEXAMETHASONE [Suspect]
     Route: 065
     Dates: end: 20110620
  5. ASS [Concomitant]
     Indication: THROMBOSIS PROPHYLAXIS
     Dosage: 100 MILLIGRAM
     Route: 048
     Dates: start: 20110528
  6. ESOMEPRAZOLE [Concomitant]
     Indication: PROPHYLAXIS AGAINST GASTROINTESTINAL ULCER
     Dosage: 20 MILLIGRAM
     Route: 048
     Dates: start: 2004
  7. METOCLOPRAMIDE [Concomitant]
     Indication: DIABETIC GASTROPARESIS
     Dosage: 30 DROPS
     Route: 048
     Dates: start: 2005
  8. RAMIPRIL [Concomitant]
     Indication: PROPHYLAXIS
     Dosage: 5 MILLIGRAM
     Route: 048
     Dates: start: 2007
  9. SIMVASTATIN [Concomitant]
     Indication: HYPERLIPIDAEMIA
     Dosage: 20 MILLIGRAM
     Route: 048
     Dates: start: 2004
  10. THIOCTACID [Concomitant]
     Indication: DIABETIC NEUROPATHY
     Dosage: 600 MILLIGRAM
     Route: 048
     Dates: start: 2007
  11. KELTICAN [Concomitant]
     Indication: DIABETIC NEUROPATHY
     Dosage: 3 CAPSULE
     Route: 048
     Dates: start: 2007
  12. INSULIN [Concomitant]
     Indication: DIABETES MELLITUS
     Dosage: 20, 30, 40 IU
     Route: 058
     Dates: start: 1991
  13. PAMIDRONATE [Concomitant]
     Indication: OSTEOLYSIS
     Route: 041
     Dates: start: 20110720
  14. CLORAZEPATE DIPOTASSIUM [Concomitant]
     Indication: SLEEP DISORDER
     Dosage: 20 MILLIGRAM
     Route: 048
     Dates: start: 20111207

REACTIONS (1)
  - Basal cell carcinoma [Recovered/Resolved]
